FAERS Safety Report 23721910 (Version 1)
Quarter: 2024Q2

REPORT INFORMATION
  Report Type: Spontaneous
  Country: US (occurrence: US)
  Receive Date: 20240409
  Receipt Date: 20240409
  Transmission Date: 20240715
  Serious: No
  Sender: FDA-Public Use
  Company Number: US-ABBVIE-5705790

PATIENT
  Age: 38 Year
  Sex: Female

DRUGS (1)
  1. LILETTA [Suspect]
     Active Substance: LEVONORGESTREL
     Indication: Product used for unknown indication
     Dosage: TIME INTERVAL: AS NECESSARY: FORM STRENGTH WAS 52 MILLIGRAM
     Route: 015
     Dates: start: 20240325, end: 20240325

REACTIONS (2)
  - Embedded device [Unknown]
  - Pain [Unknown]

NARRATIVE: CASE EVENT DATE: 20240325
